FAERS Safety Report 15014330 (Version 1)
Quarter: 2018Q2

REPORT INFORMATION
  Report Type: Spontaneous
  Country: US (occurrence: US)
  Receive Date: 20180615
  Receipt Date: 20180615
  Transmission Date: 20180711
  Serious: No
  Sender: FDA-Public Use
  Company Number: US-ASTRAZENECA-2018SE66968

PATIENT
  Age: 16868 Day
  Sex: Female
  Weight: 90.7 kg

DRUGS (3)
  1. BYDUREON BCISE [Suspect]
     Active Substance: EXENATIDE
     Indication: TYPE 2 DIABETES MELLITUS
     Route: 058
     Dates: start: 20180419
  2. JARDIANCE [Concomitant]
     Active Substance: EMPAGLIFLOZIN
     Indication: TYPE 2 DIABETES MELLITUS
     Route: 048
     Dates: start: 201804
  3. JANUVIA [Concomitant]
     Active Substance: SITAGLIPTIN PHOSPHATE
     Indication: TYPE 2 DIABETES MELLITUS
     Route: 048
     Dates: start: 201804

REACTIONS (7)
  - Injection site pain [Not Recovered/Not Resolved]
  - Feeling abnormal [Unknown]
  - Wrong technique in product usage process [Unknown]
  - Underdose [Unknown]
  - Needle issue [Unknown]
  - Injection site haemorrhage [Unknown]
  - Blood glucose fluctuation [Recovering/Resolving]

NARRATIVE: CASE EVENT DATE: 20180419
